FAERS Safety Report 23700963 (Version 1)
Quarter: 2024Q2

REPORT INFORMATION
  Report Type: Spontaneous
  Country: BE (occurrence: BE)
  Receive Date: 20240403
  Receipt Date: 20240403
  Transmission Date: 20240715
  Serious: Yes (Life-Threatening, Hospitalization, Other)
  Sender: FDA-Public Use
  Company Number: BE-009507513-1805BEL013150

PATIENT
  Age: 35 Year
  Sex: Female

DRUGS (2)
  1. BETAMETHASONE SODIUM PHOSPHATE [Suspect]
     Active Substance: BETAMETHASONE SODIUM PHOSPHATE
     Indication: Maternal therapy to enhance foetal lung maturity
     Dosage: UNK
     Route: 042
  2. ATOSIBAN [Suspect]
     Active Substance: ATOSIBAN
     Indication: Tocolysis
     Dosage: UNK
     Route: 042

REACTIONS (5)
  - Acute pulmonary oedema [Recovering/Resolving]
  - Cardiopulmonary failure [Recovering/Resolving]
  - Maternal exposure during pregnancy [Recovered/Resolved]
  - Pleural effusion [Recovering/Resolving]
  - Condition aggravated [Recovering/Resolving]
